FAERS Safety Report 7606879-4 (Version None)
Quarter: 2011Q3

REPORT INFORMATION
  Report Type: 
  Country: None (occurrence: None)
  Receive Date: 20110713
  Receipt Date: 20110706
  Transmission Date: 20111222
  Serious: Yes (Other)
  Sender: FDA-Public Use
  Company Number: JP-GLAXOSMITHKLINE-B0731633A

PATIENT
  Sex: Female

DRUGS (3)
  1. LITHIUM CARBONATE [Concomitant]
     Route: 048
  2. EPINAT [Concomitant]
     Route: 048
  3. LAMICTAL [Suspect]
     Indication: AFFECTIVE DISORDER
     Dosage: 25MG TWICE PER DAY
     Route: 048
     Dates: start: 20110622

REACTIONS (2)
  - DEPRESSED LEVEL OF CONSCIOUSNESS [None]
  - DIZZINESS [None]
